FAERS Safety Report 7225640-6 (Version None)
Quarter: 2011Q1

REPORT INFORMATION
  Report Type: 
  Country: None (occurrence: None)
  Receive Date: 20110113
  Receipt Date: 20101207
  Transmission Date: 20110831
  Serious: Yes (Death, Hospitalization, Other)
  Sender: FDA-Public Use
  Company Number: US-BAXTER-2009BH014985

PATIENT
  Age: 73 Year
  Sex: Female
  Weight: 51 kg

DRUGS (30)
  1. HEPARIN SODIUM INJECTION [Suspect]
     Indication: CATHETERISATION CARDIAC
     Route: 065
     Dates: start: 20071013, end: 20071013
  2. HEPARIN SODIUM INJECTION [Suspect]
     Route: 042
     Dates: start: 20071013, end: 20071013
  3. HEPARIN SODIUM INJECTION [Suspect]
     Route: 014
     Dates: start: 20071023, end: 20071023
  4. HEPARIN SODIUM INJECTION [Suspect]
     Route: 042
     Dates: start: 20071013
  5. ZOLOFT [Concomitant]
     Indication: PRODUCT USED FOR UNKNOWN INDICATION
     Route: 048
  6. ALBUTEROL [Concomitant]
     Indication: PRODUCT USED FOR UNKNOWN INDICATION
     Route: 055
  7. NITROGLYCERIN [Concomitant]
     Indication: PAIN IN JAW
     Route: 060
     Dates: start: 20071013
  8. WARFARIN SODIUM [Concomitant]
     Indication: PRODUCT USED FOR UNKNOWN INDICATION
     Route: 065
     Dates: start: 20071027, end: 20071117
  9. HEPARIN SODIUM INJECTION [Suspect]
     Route: 014
     Dates: start: 20071023, end: 20071023
  10. HEPARIN SODIUM INJECTION [Suspect]
     Route: 042
     Dates: start: 20071013, end: 20071013
  11. HEPARIN SODIUM 5,000 UNITS IN DEXTROSE 5% [Suspect]
     Route: 042
     Dates: start: 20071013
  12. HEPARIN SODIUM INJECTION [Suspect]
     Route: 014
     Dates: start: 20071013, end: 20071013
  13. HEPARIN SODIUM INJECTION [Suspect]
     Route: 014
     Dates: start: 20071023, end: 20071023
  14. INDOCIN [Concomitant]
     Indication: PRODUCT USED FOR UNKNOWN INDICATION
     Route: 048
  15. ASPIRIN [Concomitant]
     Indication: PRODUCT USED FOR UNKNOWN INDICATION
     Route: 048
     Dates: start: 20071031
  16. HEPARIN SODIUM INJECTION [Suspect]
     Indication: CORONARY ARTERY BYPASS
     Route: 065
     Dates: start: 20071013, end: 20071013
  17. HYDROCHLOROTHIAZIDE [Concomitant]
     Indication: PRODUCT USED FOR UNKNOWN INDICATION
     Route: 048
  18. MORPHINE [Concomitant]
     Indication: PAIN IN JAW
     Route: 042
     Dates: start: 20071031
  19. XOPENEX [Concomitant]
     Indication: PRODUCT USED FOR UNKNOWN INDICATION
     Route: 065
     Dates: start: 20071013
  20. LEVAQUIN [Concomitant]
     Indication: BRONCHITIS
     Route: 048
     Dates: start: 20070901
  21. HEPARIN SODIUM INJECTION [Suspect]
     Route: 014
     Dates: start: 20071013, end: 20071013
  22. HEPARIN SODIUM INJECTION [Suspect]
     Route: 014
     Dates: start: 20071023, end: 20071023
  23. HEPARIN SODIUM INJECTION [Suspect]
     Route: 042
     Dates: start: 20071013
  24. PREVACID [Concomitant]
     Indication: PRODUCT USED FOR UNKNOWN INDICATION
     Route: 048
  25. ZOFRAN [Concomitant]
     Indication: NAUSEA
     Route: 042
     Dates: start: 20071013
  26. HEPARIN SODIUM INJECTION [Suspect]
     Route: 065
     Dates: start: 20071014, end: 20071014
  27. HEPARIN SODIUM 5,000 UNITS IN DEXTROSE 5% [Suspect]
     Indication: CATHETERISATION CARDIAC
     Route: 042
     Dates: start: 20071013
  28. HEPARIN SODIUM INJECTION [Suspect]
     Route: 065
     Dates: start: 20071014, end: 20071014
  29. HEPARIN SODIUM INJECTION [Suspect]
     Route: 042
     Dates: start: 20071013
  30. HEPARIN SODIUM INJECTION [Suspect]
     Route: 042
     Dates: start: 20071013

REACTIONS (18)
  - ARTERIAL THROMBOSIS [None]
  - VENTRICULAR TACHYCARDIA [None]
  - PLEURAL EFFUSION [None]
  - LIVEDO RETICULARIS [None]
  - HEPARIN-INDUCED THROMBOCYTOPENIA [None]
  - COAGULOPATHY [None]
  - CHRONIC OBSTRUCTIVE PULMONARY DISEASE [None]
  - HYPOTENSION [None]
  - PERIPHERAL ISCHAEMIA [None]
  - RESPIRATORY FAILURE [None]
  - ANAEMIA [None]
  - HEPATIC CONGESTION [None]
  - LIVER FUNCTION TEST ABNORMAL [None]
  - OEDEMA PERIPHERAL [None]
  - CORONARY ARTERY DISEASE [None]
  - CARDIOGENIC SHOCK [None]
  - GENERALISED OEDEMA [None]
  - EXTREMITY NECROSIS [None]
